FAERS Safety Report 24222936 (Version 1)
Quarter: 2024Q3

REPORT INFORMATION
  Report Type: Spontaneous
  Country: US (occurrence: None)
  Receive Date: 20240816
  Receipt Date: 20240816
  Transmission Date: 20241016
  Serious: No
  Sender: Public
  Company Number: None

PATIENT
  Age: 55 Year
  Sex: Female
  Weight: 74 kg

DRUGS (1)
  1. HIZENTRA [Suspect]
     Active Substance: HUMAN IMMUNOGLOBULIN G
     Indication: Immunodeficiency common variable
     Dosage: 11 G GRAM(S) WEEKLLY SUBCUTANEOUS ?
     Route: 058
     Dates: start: 20240625

REACTIONS (2)
  - Fatigue [None]
  - Product dosage form issue [None]

NARRATIVE: CASE EVENT DATE: 20240625
